FAERS Safety Report 9525531 (Version 3)
Quarter: 2016Q3

REPORT INFORMATION
  Report Type: Report from Study
  Country: DE (occurrence: DE)
  Receive Date: 20130916
  Receipt Date: 20160928
  Transmission Date: 20161109
  Serious: Yes (Hospitalization)
  Sender: FDA-Public Use
  Company Number: DE-INCYTE CORPORATION-2013IN002057

PATIENT
  Age: 69 Year
  Sex: Female
  Weight: 74 kg

DRUGS (9)
  1. INCB018424 [Suspect]
     Active Substance: RUXOLITINIB
     Dosage: 20 MG/DAY/TWICE
     Route: 048
     Dates: start: 20130829, end: 20130830
  2. INCB018424 [Suspect]
     Active Substance: RUXOLITINIB
     Dosage: 20 MG/DAY/TWICE
     Route: 048
     Dates: start: 20130902, end: 20130903
  3. RAMIPRIL. [Concomitant]
     Active Substance: RAMIPRIL
     Dosage: UNK
     Dates: start: 20081004, end: 20130830
  4. SYREA [Concomitant]
     Active Substance: HYDROXYUREA
     Dosage: UNK
     Dates: start: 20130912
  5. INCB018424 [Suspect]
     Active Substance: RUXOLITINIB
     Indication: MYELOFIBROSIS
     Dosage: 40 MG/DAY/TWICE
     Route: 048
     Dates: start: 20130802
  6. SIMVASTATIN. [Concomitant]
     Active Substance: SIMVASTATIN
     Dosage: UNK
     Dates: start: 20130904
  7. ASPIRIN. [Concomitant]
     Active Substance: ASPIRIN
     Dosage: 100 OT
     Dates: start: 20081004, end: 20130830
  8. DELIX [Concomitant]
     Active Substance: RAMIPRIL
     Dosage: UNK
     Dates: start: 20130904
  9. BELOC-ZOK COMP [Suspect]
     Active Substance: HYDROCHLOROTHIAZIDE\METOPROLOL SUCCINATE
     Indication: CARDIOVASCULAR DISORDER
     Dosage: 190 MG, QD
     Route: 065
     Dates: start: 20081004

REACTIONS (2)
  - Atrial fibrillation [Recovered/Resolved]
  - Tachycardia [Recovered/Resolved]

NARRATIVE: CASE EVENT DATE: 20130828
